FAERS Safety Report 20747947 (Version 3)
Quarter: 2022Q3

REPORT INFORMATION
  Report Type: Spontaneous
  Country: US (occurrence: US)
  Receive Date: 20220425
  Receipt Date: 20220905
  Transmission Date: 20221026
  Serious: No
  Sender: FDA-Public Use
  Company Number: US-BRISTOL-MYERS SQUIBB COMPANY-2022-024309

PATIENT
  Age: 49 Year
  Sex: Male

DRUGS (3)
  1. REVLIMID [Suspect]
     Active Substance: LENALIDOMIDE
     Indication: Plasma cell myeloma
     Dosage: TAKE 1 CAPSULE BY MOUTH DAILY ON DAYS 1-21
     Route: 048
     Dates: start: 20220323
  2. REVLIMID [Suspect]
     Active Substance: LENALIDOMIDE
     Dosage: FREQ- TAKE 1 CAPSULE BY MOUTH DAILY ON DAY  1-14,7 DAYS OFF FOR 21 DAY CYCLE.
     Route: 048
     Dates: start: 20220323
  3. REVLIMID [Suspect]
     Active Substance: LENALIDOMIDE
     Dosage: FREQ- TAKE 1 CAPSULE BY MOUTH EVERY DAY FOR 14 DAYS IN THEN 7 DAY OFF.
     Route: 048
     Dates: start: 20220323

REACTIONS (1)
  - Fatigue [Not Recovered/Not Resolved]
